FAERS Safety Report 6339660-7 (Version None)
Quarter: 2009Q3

REPORT INFORMATION
  Report Type: 
  Country: None (occurrence: None)
  Receive Date: 20090903
  Receipt Date: 20090828
  Transmission Date: 20100115
  Serious: Yes (Life-Threatening, Hospitalization)
  Sender: FDA-Public Use
  Company Number: JP-AVENTIS-200912149JP

PATIENT
  Age: 65 Year
  Sex: Female
  Weight: 53.8 kg

DRUGS (7)
  1. LANTUS [Suspect]
     Route: 058
     Dates: start: 20080730
  2. EUGLUCON [Concomitant]
     Route: 048
     Dates: start: 19940101
  3. BASEN [Concomitant]
     Route: 048
     Dates: start: 20080212
  4. MELBIN                             /00082702/ [Concomitant]
     Route: 048
     Dates: start: 20060306
  5. OLMETEC [Concomitant]
     Indication: HYPERTENSION
     Route: 048
     Dates: start: 20070725
  6. HALCION [Concomitant]
     Indication: INSOMNIA
     Route: 048
     Dates: start: 20070725
  7. PENFILL N [Concomitant]
     Route: 058
     Dates: start: 20020327, end: 20080729

REACTIONS (1)
  - BREAST CANCER [None]
